FAERS Safety Report 21669560 (Version 6)
Quarter: 2025Q1

REPORT INFORMATION
  Report Type: Report from Study
  Country: US (occurrence: US)
  Receive Date: 20221201
  Receipt Date: 20250326
  Transmission Date: 20250408
  Serious: Yes (Other)
  Sender: EMD SERONO INC
  Company Number: US-Merck Healthcare KGaA-9329442

PATIENT
  Age: 64 Year
  Sex: Female

DRUGS (2)
  1. MAVENCLAD [Suspect]
     Active Substance: CLADRIBINE
     Indication: Multiple sclerosis
  2. MAVENCLAD [Suspect]
     Active Substance: CLADRIBINE

REACTIONS (20)
  - Decreased immune responsiveness [Recovering/Resolving]
  - COVID-19 [Recovered/Resolved]
  - Thrombosis [Unknown]
  - T-lymphocyte count decreased [Recovering/Resolving]
  - B-lymphocyte count decreased [Recovering/Resolving]
  - Platelet count abnormal [Recovering/Resolving]
  - Ear infection [Recovered/Resolved]
  - Ear haemorrhage [Unknown]
  - Conjunctivitis [Unknown]
  - Urinary tract infection [Recovered/Resolved]
  - Tongue discomfort [Unknown]
  - Tympanic membrane perforation [Unknown]
  - Varicella [Unknown]
  - Rash [Unknown]
  - Pain in extremity [Recovered/Resolved]
  - Condition aggravated [Recovered/Resolved]
  - Multiple sclerosis relapse [Unknown]
  - Injury [Unknown]
  - Contusion [Unknown]
  - Drug ineffective [Unknown]

NARRATIVE: CASE EVENT DATE: 20220101
